FAERS Safety Report 8042349-X (Version None)
Quarter: 2012Q1

REPORT INFORMATION
  Report Type: 
  Country: None (occurrence: None)
  Receive Date: 20120112
  Receipt Date: 20120103
  Transmission Date: 20120608
  Serious: Yes (Hospitalization, Other)
  Sender: FDA-Public Use
  Company Number: US-ELI_LILLY_AND_COMPANY-US201201000856

PATIENT
  Age: 56 Year
  Sex: Female

DRUGS (4)
  1. BYETTA [Suspect]
     Indication: TYPE 2 DIABETES MELLITUS
     Dosage: 5 UG, BID
     Route: 058
     Dates: start: 20111201, end: 20111201
  2. DRUG USED IN DIABETES [Concomitant]
  3. VICTOZA [Concomitant]
     Dosage: UNK, UNKNOWN
     Dates: start: 20110301, end: 20111201
  4. BYETTA [Suspect]
     Dosage: 10 UG, BID
     Route: 058

REACTIONS (2)
  - GASTROINTESTINAL INFECTION [None]
  - OESOPHAGEAL VARICES HAEMORRHAGE [None]
